FAERS Safety Report 9039053 (Version 1)
Quarter: 2013Q1

REPORT INFORMATION
  Report Type: Report from Study
  Country: US (occurrence: US)
  Receive Date: 20130129
  Receipt Date: 20130129
  Transmission Date: 20140127
  Serious: No
  Sender: FDA-Public Use
  Company Number: US-ABBOTT-12P-163-0933325-00

PATIENT
  Age: 50 Year
  Sex: Female

DRUGS (10)
  1. HUMIRA 40 MG/0.8 ML PEN [Suspect]
     Indication: RHEUMATOID ARTHRITIS
     Dates: start: 20120327
  2. PREDNISONE [Suspect]
     Indication: PAIN
     Dosage: 10 MG DAILY
  3. PRILOSEC [Concomitant]
     Indication: GASTROOESOPHAGEAL REFLUX DISEASE
     Dosage: 20MG DAILY
  4. FOLIC ACID [Concomitant]
     Indication: PRODUCT USED FOR UNKNOWN INDICATION
     Dosage: DAILY
  5. METHOTREXATE [Concomitant]
     Indication: PRODUCT USED FOR UNKNOWN INDICATION
     Dosage: 8 TABLETS WEEKLY
  6. TOPAMAX [Concomitant]
     Indication: BIPOLAR DISORDER
  7. ELAVIL [Concomitant]
     Indication: PRODUCT USED FOR UNKNOWN INDICATION
     Dosage: 100MG DAILY AT NIGHT
  8. AMBIEN [Concomitant]
     Indication: INSOMNIA
     Dosage: 10MG AT BEDTIME
  9. SAPHRIS [Concomitant]
     Indication: BIPOLAR DISORDER
     Dosage: 10MG AT BEDTIME
  10. ORACEA [Concomitant]
     Indication: ROSACEA
     Dosage: DAILY

REACTIONS (3)
  - Joint swelling [Not Recovered/Not Resolved]
  - Drug ineffective [Not Recovered/Not Resolved]
  - Arthralgia [Not Recovered/Not Resolved]
